FAERS Safety Report 14740994 (Version 2)
Quarter: 2018Q2

REPORT INFORMATION
  Report Type: Spontaneous
  Country: US (occurrence: US)
  Receive Date: 20180410
  Receipt Date: 20180424
  Transmission Date: 20180711
  Serious: Yes (Other)
  Sender: FDA-Public Use
  Company Number: US-AKORN PHARMACEUTICALS-2018AKN00430

PATIENT
  Sex: Male
  Weight: 95.24 kg

DRUGS (2)
  1. MYORISAN [Suspect]
     Active Substance: ISOTRETINOIN
     Indication: ACNE CYSTIC
     Dosage: UNK UNK, 1X/DAY
     Route: 048
     Dates: start: 20180108, end: 20180328
  2. ABSORICA [Suspect]
     Active Substance: ISOTRETINOIN
     Indication: ACNE CYSTIC
     Dosage: UNK UNK, 1X/DAY
     Route: 048
     Dates: start: 20180111, end: 20180328

REACTIONS (5)
  - Mood altered [Unknown]
  - Myalgia [Unknown]
  - Arthralgia [Unknown]
  - Depressed mood [Unknown]
  - Decreased appetite [Unknown]

NARRATIVE: CASE EVENT DATE: 2018
